FAERS Safety Report 5856877-6 (Version None)
Quarter: 2008Q3

REPORT INFORMATION
  Report Type: 
  Country: None (occurrence: None)
  Receive Date: 20080825
  Receipt Date: 20080813
  Transmission Date: 20090109
  Serious: Yes (Other)
  Sender: FDA-Public Use
  Company Number: US-PFIZER INC-2008068240

PATIENT
  Sex: Female
  Weight: 70.3 kg

DRUGS (2)
  1. LYRICA [Suspect]
     Indication: COMPLEX REGIONAL PAIN SYNDROME
  2. DRUG, UNSPECIFIED [Concomitant]

REACTIONS (6)
  - ABASIA [None]
  - CATARACT [None]
  - IMPAIRED DRIVING ABILITY [None]
  - OEDEMA PERIPHERAL [None]
  - OVARIAN OPERATION [None]
  - VISUAL ACUITY REDUCED [None]
